FAERS Safety Report 18573537 (Version 4)
Quarter: 2021Q2

REPORT INFORMATION
  Report Type: Report from Study
  Country: US (occurrence: US)
  Receive Date: 20201203
  Receipt Date: 20210605
  Transmission Date: 20210717
  Serious: No
  Sender: FDA-Public Use
  Company Number: NVSC2020US320505

PATIENT
  Age: 44 Year
  Sex: Female
  Weight: 54.43 kg

DRUGS (2)
  1. KESIMPTA [Suspect]
     Active Substance: OFATUMUMAB
     Indication: PRODUCT USED FOR UNKNOWN INDICATION
     Dosage: 20 MG, QMO (BENEATH THE SKIN, USUALLY VIA INJECTION)
     Route: 058
     Dates: start: 20201120
  2. GILENYA [Suspect]
     Active Substance: FINGOLIMOD HYDROCHLORIDE
     Indication: PRODUCT USED FOR UNKNOWN INDICATION
     Dosage: 0.5 MG, QD
     Route: 048
     Dates: start: 202010

REACTIONS (10)
  - Memory impairment [Unknown]
  - Asthenia [Unknown]
  - Back pain [Unknown]
  - Root canal infection [Unknown]
  - Balance disorder [Unknown]
  - Cognitive disorder [Unknown]
  - Pain in extremity [Unknown]
  - Fall [Unknown]
  - Fatigue [Unknown]
  - Drug ineffective [Unknown]

NARRATIVE: CASE EVENT DATE: 20210505
